FAERS Safety Report 12234487 (Version 2)
Quarter: 2016Q2

REPORT INFORMATION
  Report Type: Spontaneous
  Country: US (occurrence: US)
  Receive Date: 20160404
  Receipt Date: 20160427
  Transmission Date: 20160815
  Serious: No
  Sender: FDA-Public Use
  Company Number: US-GLAXOSMITHKLINE-US2016041029

PATIENT
  Age: 89 Year
  Sex: Male

DRUGS (7)
  1. ANORO ELLIPTA [Suspect]
     Active Substance: UMECLIDINIUM BROMIDE\VILANTEROL TRIFENATATE
     Indication: DYSPNOEA
     Dosage: 1 PUFF(S), QD
     Route: 055
     Dates: start: 20160316
  2. WARFARIN [Concomitant]
     Active Substance: WARFARIN
  3. FUROSEMIDE. [Concomitant]
     Active Substance: FUROSEMIDE
  4. MAGNESIUM OXIDE. [Concomitant]
     Active Substance: MAGNESIUM OXIDE
  5. ASPIRIN. [Concomitant]
     Active Substance: ASPIRIN
  6. DIGOXIN. [Concomitant]
     Active Substance: DIGOXIN
  7. SPIRONOLACTONE. [Concomitant]
     Active Substance: SPIRONOLACTONE

REACTIONS (3)
  - Condition aggravated [Not Recovered/Not Resolved]
  - Muscle swelling [Not Recovered/Not Resolved]
  - Oedema [Not Recovered/Not Resolved]

NARRATIVE: CASE EVENT DATE: 201603
